FAERS Safety Report 7257300-X (Version None)
Quarter: 2011Q1

REPORT INFORMATION
  Report Type: 
  Country: None (occurrence: None)
  Receive Date: 20110129
  Receipt Date: 20100712
  Transmission Date: 20110831
  Serious: No
  Sender: FDA-Public Use
  Company Number: US-ABBOTT-10P-163-0656384-00

PATIENT
  Sex: Female

DRUGS (3)
  1. HUMIRA [Suspect]
     Indication: CROHN'S DISEASE
     Dosage: ON SATURDAY
     Dates: start: 20100701
  2. ENDOCORT [Concomitant]
     Indication: CROHN'S DISEASE
  3. HUMIRA [Suspect]

REACTIONS (3)
  - THROAT IRRITATION [None]
  - COUGH [None]
  - HEADACHE [None]
